FAERS Safety Report 9793337 (Version 2)
Quarter: 2014Q1

REPORT INFORMATION
  Report Type: Spontaneous
  Country: US (occurrence: US)
  Receive Date: 20140102
  Receipt Date: 20140117
  Transmission Date: 20141002
  Serious: Yes (Other)
  Sender: FDA-Public Use
  Company Number: US-PFIZER INC-2013374154

PATIENT
  Sex: Male

DRUGS (5)
  1. XANAX [Suspect]
     Dosage: 1 MG, UNK
  2. LORTAB [Suspect]
     Dosage: 10 MG, UNK
  3. GABAPENTIN [Concomitant]
     Dosage: 400 MG, UNK
  4. WELLBUTRIN [Concomitant]
     Dosage: 300 MG, UNK
  5. LAMICTAL [Concomitant]
     Dosage: 300 MG, UNK

REACTIONS (1)
  - Suicide attempt [Unknown]
